FAERS Safety Report 21882757 (Version 1)
Quarter: 2023Q1

REPORT INFORMATION
  Report Type: Spontaneous
  Country: US (occurrence: US)
  Receive Date: 20230119
  Receipt Date: 20230119
  Transmission Date: 20230418
  Serious: Yes (Hospitalization)
  Sender: FDA-Public Use
  Company Number: US-STRIDES ARCOLAB LIMITED-2022SP007819

PATIENT
  Age: 39 Year
  Sex: Male

DRUGS (5)
  1. METHOTREXATE [Suspect]
     Active Substance: METHOTREXATE
     Indication: Dermatitis exfoliative generalised
     Dosage: UNK
     Route: 065
  2. ETANERCEPT [Suspect]
     Active Substance: ETANERCEPT
     Indication: Dermatitis exfoliative generalised
     Dosage: UNK
     Route: 065
  3. USTEKINUMAB [Suspect]
     Active Substance: USTEKINUMAB
     Indication: Dermatitis exfoliative generalised
     Dosage: UNK
     Route: 065
  4. SECUKINUMAB [Concomitant]
     Active Substance: SECUKINUMAB
     Indication: Psoriasis
     Dosage: UNK
     Route: 065
  5. SECUKINUMAB [Concomitant]
     Active Substance: SECUKINUMAB
     Dosage: UNK, (STARTED 10 MONTHS PRIOR TO ADMISSION FOR PSORIASIS FLARE)
     Route: 065

REACTIONS (1)
  - Drug ineffective for unapproved indication [Unknown]
